FAERS Safety Report 4778030-X (Version None)
Quarter: 2005Q3

REPORT INFORMATION
  Report Type: 
  Country: None (occurrence: None)
  Receive Date: 20050923
  Receipt Date: 20050923
  Transmission Date: 20060218
  Serious: Yes (Other)
  Sender: FDA-Public Use
  Company Number: None

PATIENT
  Age: 65 Year
  Sex: Male
  Weight: 40 kg

DRUGS (34)
  1. CLINDAMYCIN [Suspect]
  2. MORPHINE [Concomitant]
  3. OXYCODONE HCL [Concomitant]
  4. ALBUTEROL SO4 [Concomitant]
  5. DOCUSATE NA [Concomitant]
  6. GUAIFENESIN [Concomitant]
  7. IPRATROPIUM BROMIDE [Concomitant]
  8. LORAZEPAM [Concomitant]
  9. MULTI-VITAMIN [Concomitant]
  10. NITROGLYCERIN [Concomitant]
  11. OMEPRAZOLE [Concomitant]
  12. TAMSULOSIN HCL [Concomitant]
  13. DOCUSATE NA [Concomitant]
  14. SENNOSIDES [Concomitant]
  15. HYPROMELLOSE [Concomitant]
  16. IPRATROPIUM BROMIDE [Concomitant]
  17. OMEPRAZOLE [Concomitant]
  18. ACETAMINOPHEN [Concomitant]
  19. MORPHINE [Concomitant]
  20. DOCUSATE/SENNOSIDES TAB [Concomitant]
  21. BISMUTH SUBSALICYLATE [Concomitant]
  22. OXYCODONE HCL [Concomitant]
  23. TAMSULOSIN [Concomitant]
  24. MULTI-VITAMIN [Concomitant]
  25. HYPROMELLOSE [Concomitant]
  26. LORAZEPAM [Concomitant]
  27. NITROGLYCERIN [Concomitant]
  28. SODIUM CHLORIDE [Concomitant]
  29. IPRATROPIUM BROMIDE [Concomitant]
  30. GUAIFENESIN [Concomitant]
  31. ALBUTEROL [Concomitant]
  32. MILK OF MAGNESIA TAB [Concomitant]
  33. ARTIFICIAL SALIVA LIQUID [Concomitant]
  34. ALOH/MGOH/SIMTH XTRA STRENGTH [Concomitant]

REACTIONS (1)
  - URTICARIA [None]
